FAERS Safety Report 11876704 (Version 1)
Quarter: 2015Q4

REPORT INFORMATION
  Report Type: Spontaneous
  Country: DE (occurrence: DE)
  Receive Date: 20151229
  Receipt Date: 20151229
  Transmission Date: 20160305
  Serious: Yes (Hospitalization)
  Sender: FDA-Public Use
  Company Number: DE-TEVA-620293GER

PATIENT
  Age: 16 Year
  Sex: Male

DRUGS (1)
  1. MCP [Suspect]
     Active Substance: METOCLOPRAMIDE HYDROCHLORIDE
     Indication: GASTROENTERITIS
     Route: 030
     Dates: start: 20151120

REACTIONS (3)
  - Sensory level abnormal [Recovering/Resolving]
  - Restlessness [Recovering/Resolving]
  - Asthenia [Recovering/Resolving]

NARRATIVE: CASE EVENT DATE: 20151120
